FAERS Safety Report 13120650 (Version 23)
Quarter: 2025Q4

REPORT INFORMATION
  Report Type: Spontaneous
  Country: US (occurrence: US)
  Receive Date: 20170117
  Receipt Date: 20251114
  Transmission Date: 20260118
  Serious: No
  Sender: PFIZER
  Company Number: US-PFIZER INC-2017012640

PATIENT
  Age: 57 Year
  Sex: Female

DRUGS (6)
  1. SOMAVERT [Suspect]
     Active Substance: PEGVISOMANT
     Indication: Brain neoplasm
     Dosage: 20 MG
  2. SOMAVERT [Suspect]
     Active Substance: PEGVISOMANT
     Indication: Multiple endocrine neoplasia Type 1
     Dosage: DAILY EVERY MORNING
     Dates: start: 200603
  3. SOMAVERT [Suspect]
     Active Substance: PEGVISOMANT
     Indication: Pituitary tumour
     Dosage: 20 MG
     Dates: start: 20180716
  4. SOMAVERT [Suspect]
     Active Substance: PEGVISOMANT
     Indication: Heart transplant
     Dosage: 20 MG
     Dates: start: 20200901
  5. SOMAVERT [Suspect]
     Active Substance: PEGVISOMANT
     Dosage: 20 MG, DAILY
  6. SOMAVERT [Suspect]
     Active Substance: PEGVISOMANT
     Dosage: 40 MG, DAILY

REACTIONS (5)
  - Incorrect dose administered [Unknown]
  - Needle issue [Unknown]
  - Drug ineffective for unapproved indication [Unknown]
  - Off label use [Unknown]
  - Overdose [Unknown]

NARRATIVE: CASE EVENT DATE: 20060301
